FAERS Safety Report 22362023 (Version 1)
Quarter: 2023Q2

REPORT INFORMATION
  Report Type: Spontaneous
  Country: US (occurrence: US)
  Receive Date: 20230524
  Receipt Date: 20230524
  Transmission Date: 20230722
  Serious: Yes (Other)
  Sender: FDA-Public Use
  Company Number: US-PFIZER INC-202300196315

PATIENT
  Sex: Male

DRUGS (1)
  1. SONATA [Suspect]
     Active Substance: ZALEPLON
     Dosage: UNK
     Dates: start: 20230518

REACTIONS (1)
  - Intentional self-injury [Unknown]

NARRATIVE: CASE EVENT DATE: 20230518
